FAERS Safety Report 7249909-4 (Version None)
Quarter: 2011Q1

REPORT INFORMATION
  Report Type: 
  Country: None (occurrence: None)
  Receive Date: 20110128
  Receipt Date: 20100803
  Transmission Date: 20110831
  Serious: No
  Sender: FDA-Public Use
  Company Number: A0878220A

PATIENT
  Age: 63 Year
  Sex: Female
  Weight: 79.1 kg

DRUGS (9)
  1. LISINOPRIL [Concomitant]
     Dosage: 5MG PER DAY
  2. RISPERIDONE [Concomitant]
  3. FUROSEMIDE [Concomitant]
     Dosage: 30MG PER DAY
     Route: 048
  4. WELLBUTRIN XL [Suspect]
     Route: 048
     Dates: end: 20100601
  5. ACETYLSALICYLIC ACID SRT [Concomitant]
     Dosage: 325MG PER DAY
     Route: 048
  6. METOPROLOL [Concomitant]
     Dosage: 50MG PER DAY
     Route: 048
  7. TRILIPIX [Suspect]
     Dosage: 135MG PER DAY
     Route: 048
     Dates: start: 20100401
  8. ISOSORBIDE DINITRATE [Concomitant]
     Route: 048
  9. ATORVASTATIN [Concomitant]
     Indication: BLOOD CHOLESTEROL INCREASED
     Dosage: 120MG PER DAY
     Route: 048
     Dates: start: 20100101

REACTIONS (1)
  - NAUSEA [None]
